FAERS Safety Report 10256439 (Version 1)
Quarter: 2014Q2

REPORT INFORMATION
  Report Type: Spontaneous
  Country: US (occurrence: US)
  Receive Date: 20140624
  Receipt Date: 20140624
  Transmission Date: 20141212
  Serious: No
  Sender: FDA-Public Use
  Company Number: US-ZOGENIX, INC.-2012ZX000192

PATIENT
  Age: 49 Year
  Sex: Female
  Weight: 68.1 kg

DRUGS (4)
  1. SUMAVEL DOSEPRO [Suspect]
     Indication: MIGRAINE
     Dates: start: 20120524, end: 20120524
  2. SUMAVEL DOSEPRO [Suspect]
     Dates: start: 20120525, end: 20120525
  3. TOPAMAX [Concomitant]
     Indication: MIGRAINE
     Route: 048
  4. IMITREX [Concomitant]
     Indication: MIGRAINE
     Route: 048

REACTIONS (2)
  - Drug effect incomplete [Not Recovered/Not Resolved]
  - Device malfunction [Recovered/Resolved]
